FAERS Safety Report 24578487 (Version 2)
Quarter: 2024Q4

REPORT INFORMATION
  Report Type: Report from Study
  Country: US (occurrence: US)
  Receive Date: 20241105
  Receipt Date: 20241115
  Transmission Date: 20250114
  Serious: Yes (Disabling, Other)
  Sender: NOVO NORDISK
  Company Number: US-NOVOPROD-1309428

PATIENT
  Age: 49 Year
  Sex: Male

DRUGS (1)
  1. NOVOLOG [Suspect]
     Active Substance: INSULIN ASPART
     Indication: Type 2 diabetes mellitus
     Dosage: 14 IU
     Route: 058
     Dates: start: 201603

REACTIONS (7)
  - Neuropathy peripheral [Not Recovered/Not Resolved]
  - Retinal detachment [Not Recovered/Not Resolved]
  - Retinal detachment [Not Recovered/Not Resolved]
  - Cataract [Not Recovered/Not Resolved]
  - Cataract [Not Recovered/Not Resolved]
  - Localised infection [Not Recovered/Not Resolved]
  - Tremor [Not Recovered/Not Resolved]

NARRATIVE: CASE EVENT DATE: 20170101
